FAERS Safety Report 7082632-8 (Version None)
Quarter: 2010Q4

REPORT INFORMATION
  Report Type: 
  Country: None (occurrence: None)
  Receive Date: 20101104
  Receipt Date: 20101026
  Transmission Date: 20110411
  Serious: Yes (Life-Threatening, Hospitalization)
  Sender: FDA-Public Use
  Company Number: FR-JNJFOC-20101100084

PATIENT
  Sex: Male

DRUGS (11)
  1. IXPRIM [Suspect]
     Indication: PAIN
     Route: 048
  2. ALPRAZOLAM [Concomitant]
     Route: 065
  3. CARDENSIEL [Concomitant]
     Route: 065
  4. LASIX [Concomitant]
     Route: 065
  5. MODAMIDE [Concomitant]
     Route: 065
  6. PRAVASTATIN [Concomitant]
     Route: 065
  7. TADENAN [Concomitant]
     Route: 065
  8. TRIATEC [Concomitant]
     Route: 065
  9. LOVENOX [Concomitant]
     Route: 065
  10. ACUPAN [Concomitant]
     Route: 065
  11. DOLIPRANE [Concomitant]
     Indication: PAIN
     Dosage: 2 TABLETS 3 TIMES A DAY
     Route: 065

REACTIONS (2)
  - LEUKOPENIA [None]
  - NEUTROPENIA [None]
